FAERS Safety Report 23982951 (Version 2)
Quarter: 2025Q1

REPORT INFORMATION
  Report Type: Spontaneous
  Country: US (occurrence: US)
  Receive Date: 20240617
  Receipt Date: 20250222
  Transmission Date: 20250409
  Serious: No
  Sender: SANOFI AVENTIS
  Company Number: US-SANOFI-02090284

PATIENT
  Age: 62 Year
  Sex: Female

DRUGS (14)
  1. KEVZARA [Suspect]
     Active Substance: SARILUMAB
     Indication: Rheumatoid arthritis
     Dosage: 200 MG, QOW
     Dates: start: 20240529
  2. CALCIUM CARBONATE [Concomitant]
     Active Substance: CALCIUM CARBONATE
  3. VITAMIN D3 [Concomitant]
     Active Substance: CHOLECALCIFEROL
  4. ARAVA [Concomitant]
     Active Substance: LEFLUNOMIDE
  5. CELEBREX [Concomitant]
     Active Substance: CELECOXIB
  6. ASPIRIN [Concomitant]
     Active Substance: ASPIRIN
  7. CHOLESTYRAMINE [Concomitant]
     Active Substance: CHOLESTYRAMINE
  8. PREDNISONE [Concomitant]
     Active Substance: PREDNISONE
  9. METOPROLOL SUCCINATE [Concomitant]
     Active Substance: METOPROLOL SUCCINATE
  10. LYSINE [Concomitant]
     Active Substance: LYSINE
  11. SERENITY [Concomitant]
  12. HERBALS\TURMERIC [Concomitant]
     Active Substance: HERBALS\TURMERIC
  13. ALENDRONATE SODIUM [Concomitant]
     Active Substance: ALENDRONATE SODIUM
  14. OMEGA-3 ACIDS [Concomitant]
     Active Substance: OMEGA-3 FATTY ACIDS

REACTIONS (12)
  - Hypoaesthesia [Unknown]
  - Paraesthesia [Unknown]
  - Sciatic nerve injury [Unknown]
  - Grip strength decreased [Unknown]
  - Bone fragmentation [Unknown]
  - Mobility decreased [Unknown]
  - Stenosis [Unknown]
  - Pain in extremity [Unknown]
  - Spinal operation [Unknown]
  - Knee operation [Unknown]
  - Exposure via skin contact [Unknown]
  - Accidental exposure to product [Unknown]

NARRATIVE: CASE EVENT DATE: 20240501
